FAERS Safety Report 7484469-4 (Version None)
Quarter: 2011Q2

REPORT INFORMATION
  Report Type: 
  Country: None (occurrence: None)
  Receive Date: 20110510
  Receipt Date: 20110407
  Transmission Date: 20111010
  Serious: Yes (Hospitalization)
  Sender: FDA-Public Use
  Company Number: 2011028180

PATIENT
  Age: 54 Year
  Sex: Female
  Weight: 92.5338 kg

DRUGS (8)
  1. NEXIUM [Concomitant]
  2. PULMICORT [Concomitant]
  3. ZEMAIRA [Suspect]
     Indication: ALPHA-1 ANTI-TRYPSIN DEFICIENCY
     Dosage: 60 MG/KG 1X/WEEK, AT RATE OF 0.8ML PER KG PER MIN INTRAVENOUS
     Route: 042
     Dates: start: 20100505
  4. THIAMINE (THIAMINE) [Concomitant]
  5. FORADIL [Concomitant]
  6. SPIRIVA [Concomitant]
  7. ALBUTEROL [Concomitant]
  8. SINGULAIR [Concomitant]

REACTIONS (1)
  - PNEUMONIA [None]
